FAERS Safety Report 4999707-7 (Version None)
Quarter: 2006Q2

REPORT INFORMATION
  Report Type: 
  Country: None (occurrence: None)
  Receive Date: 20060509
  Receipt Date: 20060509
  Transmission Date: 20061013
  Serious: Yes (Hospitalization)
  Sender: FDA-Public Use
  Company Number: None

PATIENT
  Sex: Male
  Weight: 63 kg

DRUGS (2)
  1. ACETAMINOPHEN [Suspect]
     Indication: ACCIDENTAL OVERDOSE
     Dosage: 20-30 TABS PO
     Route: 048
     Dates: start: 20060325, end: 20060326
  2. ACETAMINOPHEN [Suspect]
     Indication: INTENTIONAL OVERDOSE
     Dosage: 20-30 TABS PO
     Route: 048
     Dates: start: 20060325, end: 20060326

REACTIONS (6)
  - ASPARTATE AMINOTRANSFERASE INCREASED [None]
  - BRAIN OEDEMA [None]
  - CONVULSION [None]
  - HEPATIC ENCEPHALOPATHY [None]
  - INCORRECT DOSE ADMINISTERED [None]
  - LOSS OF CONSCIOUSNESS [None]
